FAERS Safety Report 7588714-6 (Version None)
Quarter: 2011Q3

REPORT INFORMATION
  Report Type: 
  Country: None (occurrence: None)
  Receive Date: 20110705
  Receipt Date: 20110606
  Transmission Date: 20111222
  Serious: Yes (Other)
  Sender: FDA-Public Use
  Company Number: US-BAYER-2011-017319

PATIENT
  Age: 24 Year
  Sex: Female
  Weight: 95.238 kg

DRUGS (1)
  1. YAZ [Suspect]
     Indication: ACNE
     Dosage: UNK
     Route: 048
     Dates: start: 20080130, end: 20080701

REACTIONS (3)
  - PAIN [None]
  - CHOLECYSTITIS [None]
  - INJURY [None]
